FAERS Safety Report 9168088 (Version 1)
Quarter: 2013Q1

REPORT INFORMATION
  Report Type: Spontaneous
  Country: DE (occurrence: DE)
  Receive Date: 20130318
  Receipt Date: 20130318
  Transmission Date: 20140127
  Serious: Yes (Hospitalization, Other)
  Sender: FDA-Public Use
  Company Number: DE-009507513-0411DEU00408

PATIENT
  Sex: Male
  Weight: 79 kg

DRUGS (1)
  1. MK-0966 [Suspect]
     Indication: OSTEOPOROSIS
     Dosage: 25 MG, QD
     Route: 048
     Dates: start: 20040528, end: 20041007

REACTIONS (4)
  - Acute myocardial infarction [Recovered/Resolved with Sequelae]
  - Coronary artery disease [Recovered/Resolved with Sequelae]
  - Musculoskeletal pain [Unknown]
  - General physical health deterioration [Not Recovered/Not Resolved]
